FAERS Safety Report 6010229-7 (Version None)
Quarter: 2008Q4

REPORT INFORMATION
  Report Type: 
  Country: None (occurrence: None)
  Receive Date: 20081218
  Receipt Date: 20080117
  Transmission Date: 20090506
  Serious: No
  Sender: FDA-Public Use
  Company Number: A0703861A

PATIENT
  Age: 74 Year
  Sex: Female

DRUGS (2)
  1. FLONASE [Suspect]
     Route: 045
     Dates: start: 20060101, end: 20070101
  2. NO CONCURRENT MEDICATION [Concomitant]

REACTIONS (2)
  - AGEUSIA [None]
  - PRODUCT QUALITY ISSUE [None]
